FAERS Safety Report 9980864 (Version 1)
Quarter: 2014Q1

REPORT INFORMATION
  Report Type: Spontaneous
  Country: GB (occurrence: None)
  Receive Date: 20140305
  Receipt Date: 20140305
  Transmission Date: 20141002
  Serious: Yes (Other)
  Sender: FDA-Public Use
  Company Number: AUR-APL-2014-012162

PATIENT
  Age: 45 Year
  Sex: Male

DRUGS (13)
  1. QUETIAPINE (QUETIAPINE) [Suspect]
     Indication: PSYCHOTIC DISORDER
     Route: 048
     Dates: start: 20130129, end: 20140127
  2. AMITRIPTYLINE (AMITRIPTYLINE) [Concomitant]
  3. CENTIRIZINE (CENTIRIZINE) [Concomitant]
  4. DIAZEPAM (DIAZEPAM) [Concomitant]
  5. DULOXETINE (DULOXETINE) (DULOXETINE) [Concomitant]
  6. LANSOPRAZOLE (LANSOPRAZOLE) [Concomitant]
  7. OXYCONTIN (OXYCODONE HYDROCHLORIDE) [Concomitant]
  8. PRAMIPEXOLE (PRAMIPEXOLE) [Concomitant]
  9. PREGABALIN (PREGABALIN) [Concomitant]
  10. QUININE SULFATE (QUININE SULFATE) [Concomitant]
  11. SENNA (SENNA ALEXANDRIA) [Concomitant]
  12. SOLIFENACIN (SOLIFENACIN) [Concomitant]
  13. ZOPICLONE (ZOPICLONE) [Concomitant]

REACTIONS (1)
  - Transient ischaemic attack [None]
